FAERS Safety Report 7496079-3 (Version None)
Quarter: 2011Q2

REPORT INFORMATION
  Report Type: 
  Country: None (occurrence: None)
  Receive Date: 20110523
  Receipt Date: 20110510
  Transmission Date: 20111010
  Serious: Yes (Hospitalization)
  Sender: FDA-Public Use
  Company Number: US-AMGEN-USASP2011024212

PATIENT
  Age: 59 Year
  Sex: Female

DRUGS (1)
  1. ENBREL [Suspect]
     Indication: RHEUMATOID ARTHRITIS
     Dosage: 50 MG, QWK
     Dates: start: 20051010

REACTIONS (6)
  - KNEE ARTHROPLASTY [None]
  - OSTEOPOROSIS [None]
  - INJECTION SITE PAIN [None]
  - RHEUMATOID ARTHRITIS [None]
  - WEIGHT DECREASED [None]
  - JOINT DESTRUCTION [None]
